FAERS Safety Report 6140429-7 (Version None)
Quarter: 2009Q1

REPORT INFORMATION
  Report Type: 
  Country: None (occurrence: None)
  Receive Date: 20090331
  Receipt Date: 20090324
  Transmission Date: 20090719
  Serious: Yes (Other)
  Sender: FDA-Public Use
  Company Number: 189022USA

PATIENT
  Age: 20 Year
  Sex: Female

DRUGS (1)
  1. CLARAVIS [Suspect]
     Indication: ACNE CYSTIC
     Dosage: 40 MG (40 MG,  1 IN 1 D), ORAL
     Route: 048
     Dates: start: 20081121, end: 20090324

REACTIONS (3)
  - DEPRESSION [None]
  - SOCIAL PROBLEM [None]
  - SUICIDAL IDEATION [None]
